FAERS Safety Report 9480768 (Version 1)
Quarter: 2013Q3

REPORT INFORMATION
  Report Type: Spontaneous
  Country: US (occurrence: US)
  Receive Date: 20130828
  Receipt Date: 20130828
  Transmission Date: 20140515
  Serious: Yes (Death, Hospitalization, Other)
  Sender: FDA-Public Use
  Company Number: US-AMGEN-KDL118802

PATIENT
  Sex: Female

DRUGS (1)
  1. ENBREL [Suspect]
     Indication: RHEUMATOID ARTHRITIS
     Dosage: UNK UNK, UNK
     Route: 065
     Dates: start: 20040401

REACTIONS (9)
  - Death [Fatal]
  - Gastrointestinal obstruction [Unknown]
  - Localised infection [Unknown]
  - Hepatic cancer [Unknown]
  - Condition aggravated [Unknown]
  - Brain neoplasm malignant [Unknown]
  - Condition aggravated [Unknown]
  - Lung neoplasm malignant [Unknown]
  - Condition aggravated [Unknown]
